FAERS Safety Report 6495343-4 (Version None)
Quarter: 2009Q4

REPORT INFORMATION
  Report Type: 
  Country: None (occurrence: None)
  Receive Date: 20091214
  Receipt Date: 20090604
  Transmission Date: 20100525
  Serious: Yes (Hospitalization)
  Sender: FDA-Public Use
  Company Number: US-BRISTOL-MYERS SQUIBB COMPANY-14650295

PATIENT
  Age: 41 Year
  Sex: Male
  Weight: 63 kg

DRUGS (4)
  1. ABILIFY [Suspect]
     Dosage: INITIATED AT 5MG,  INCREASED TO 10MG, AND TO 15MG QD
     Dates: start: 20090101, end: 20090526
  2. CARBAMAZEPINE [Concomitant]
     Indication: BIPOLAR DISORDER
     Dosage: TAPERED TO 500MG DUE TO NEUROTOXICITY AND THEN FURTHER TO 200MG AND DISCONTINUED
  3. ARICEPT [Concomitant]
  4. NAMENDA [Concomitant]

REACTIONS (4)
  - ABASIA [None]
  - FREEZING PHENOMENON [None]
  - GRAND MAL CONVULSION [None]
  - HYPERTONIA [None]
